FAERS Safety Report 14641839 (Version 10)
Quarter: 2019Q1

REPORT INFORMATION
  Report Type: Report from Study
  Country: GB (occurrence: GB)
  Receive Date: 20180315
  Receipt Date: 20190315
  Transmission Date: 20190417
  Serious: Yes (Hospitalization, Other)
  Sender: FDA-Public Use
  Company Number: GB-ROCHE-2086312

PATIENT
  Age: 73 Year
  Sex: Female
  Weight: 67 kg

DRUGS (14)
  1. CHLORAMPHENICOL [Concomitant]
     Active Substance: CHLORAMPHENICOL
     Dosage: DOSE: 1 UNKNOWN
     Route: 061
     Dates: start: 20181003, end: 20181004
  2. SIMVASTATIN. [Concomitant]
     Active Substance: SIMVASTATIN
     Indication: CARDIOVASCULAR EVENT PROPHYLAXIS
     Route: 065
     Dates: start: 20120202
  3. DOXYCYCLINE. [Concomitant]
     Active Substance: DOXYCYCLINE
     Indication: NASAL CONGESTION
     Route: 048
     Dates: start: 20181112, end: 20181118
  4. PREDSOL [Concomitant]
     Active Substance: PREDNISOLONE
     Indication: CONJUNCTIVITIS
     Route: 061
     Dates: start: 20180620
  5. COBIMETINIB. [Suspect]
     Active Substance: COBIMETINIB
     Indication: MALIGNANT MELANOMA
     Dosage: ON 26/FEB/2018, SHE RECEIVED MOST RECENT DOSE OF COBIMETINIB PRIOR TO EVENT ONSET.?ON 03/MAR/2018, S
     Route: 048
     Dates: start: 20180223
  6. CALCI-D [Concomitant]
     Indication: OSTEOPOROSIS PROPHYLAXIS
     Route: 065
     Dates: start: 20170125
  7. MIRTAZAPINE. [Concomitant]
     Active Substance: MIRTAZAPINE
     Indication: ANXIETY
     Route: 048
     Dates: start: 20180406
  8. BLINDED ATEZOLIZUMAB [Suspect]
     Active Substance: ATEZOLIZUMAB
     Indication: MALIGNANT MELANOMA
     Dosage: MOST RECENT DOSE OF BLINDED ATEZOLIZUMAB WAS RECEIVED ON 20/APR/2018 PRIOR TO EVENT ONSET.?ON 05/OCT
     Route: 042
     Dates: start: 20180322
  9. DOXYCYCLINE. [Concomitant]
     Active Substance: DOXYCYCLINE
     Route: 065
     Dates: start: 20180516, end: 20180522
  10. DERMOVATE [Concomitant]
     Active Substance: CLOBETASOL
     Route: 061
     Dates: start: 20180810
  11. PROPYLENE GLYCOL [Concomitant]
     Active Substance: PROPYLENE GLYCOL
     Route: 061
     Dates: start: 20180615
  12. VEMURAFENIB. [Suspect]
     Active Substance: VEMURAFENIB
     Indication: MALIGNANT MELANOMA
     Dosage: ON 26/FEB/2018, SHE RECEIVED MOST RECENT DOSE OF VEMURAFENIB, ON 03/MAR/2018, SHE RECEIVED MOST RECE
     Route: 048
     Dates: start: 20180223
  13. FLUCONAZOLE. [Concomitant]
     Active Substance: FLUCONAZOLE
     Indication: ORAL CANDIDIASIS
     Route: 048
     Dates: start: 20180406, end: 20180410
  14. SEBCO [Concomitant]
     Route: 061
     Dates: start: 20180907

REACTIONS (6)
  - Chorioretinopathy [Recovered/Resolved with Sequelae]
  - Vitreous haemorrhage [Recovered/Resolved]
  - Retinal tear [Recovered/Resolved]
  - Influenza like illness [Recovered/Resolved]
  - Vitreous degeneration [Recovered/Resolved]
  - Chorioretinopathy [Recovered/Resolved]

NARRATIVE: CASE EVENT DATE: 20180227
